FAERS Safety Report 23361199 (Version 1)
Quarter: 2024Q1

REPORT INFORMATION
  Report Type: Report from Study
  Country: US (occurrence: US)
  Receive Date: 20240103
  Receipt Date: 20240103
  Transmission Date: 20240410
  Serious: Yes (Other)
  Sender: FDA-Public Use
  Company Number: US-ALNYLAM PHARMACEUTICALS, INC.-ALN-2023-006938

PATIENT

DRUGS (2)
  1. GIVLAARI [Suspect]
     Active Substance: GIVOSIRAN SODIUM
     Indication: Product used for unknown indication
     Dosage: 151.50 MILLIGRAM, MONTHLY
     Route: 058
     Dates: start: 20231207
  2. AMITRIPTYLINE [Suspect]
     Active Substance: AMITRIPTYLINE
     Indication: Product used for unknown indication
     Dosage: UNK
     Route: 065

REACTIONS (11)
  - Tardive dyskinesia [Unknown]
  - Porphyria acute [Unknown]
  - Dysphemia [Unknown]
  - Hypertension [Unknown]
  - Constipation [Unknown]
  - Pain [Unknown]
  - Food refusal [Unknown]
  - Dehydration [Unknown]
  - Weight increased [Unknown]
  - Cardiac disorder [Unknown]
  - Fluid retention [Unknown]

NARRATIVE: CASE EVENT DATE: 20231201
